FAERS Safety Report 8962292 (Version 1)
Quarter: 2012Q4

REPORT INFORMATION
  Report Type: 
  Country: GB (occurrence: GB)
  Receive Date: 20121212
  Receipt Date: 20121212
  Transmission Date: 20130627
  Serious: Yes (Other)
  Sender: FDA-Public Use
  Company Number: GB-WATSON-2012-21853

PATIENT
  Age: 60 Year
  Sex: Female
  Weight: 76 kg

DRUGS (6)
  1. IBUPROFEN [Suspect]
     Indication: PAIN
     Dosage: 400 mg, tid
     Route: 048
     Dates: start: 20050124, end: 20050201
  2. IBUPROFEN [Suspect]
     Indication: ARTHRITIS
  3. CO-PROXAMOL [Concomitant]
     Indication: PRODUCT USED FOR UNKNOWN INDICATION
     Dosage: 1-2 3x daily
     Route: 048
  4. CUPROFEN [Concomitant]
     Indication: PRODUCT USED FOR UNKNOWN INDICATION
     Dosage: 1 DF, tid
     Route: 048
  5. APOREX [Concomitant]
     Indication: ARTHRALGIA
     Dosage: unknown
     Route: 048
  6. COLOFAC                            /00139402/ [Concomitant]
     Indication: PRODUCT USED FOR UNKNOWN INDICATION
     Dosage: 135 mg, tid
     Route: 048

REACTIONS (4)
  - Dizziness [Recovered/Resolved]
  - Dysgeusia [Recovered/Resolved]
  - Pyrexia [Recovered/Resolved]
  - Nausea [Recovered/Resolved]
